FAERS Safety Report 8086659-9 (Version None)
Quarter: 2012Q1

REPORT INFORMATION
  Report Type: 
  Country: None (occurrence: None)
  Receive Date: 20120128
  Receipt Date: 20110512
  Transmission Date: 20120608
  Serious: Yes (Hospitalization)
  Sender: FDA-Public Use
  Company Number: US-ABBOTT-11P-163-0725540-00

PATIENT
  Sex: Female

DRUGS (1)
  1. HUMIRA [Suspect]
     Indication: CROHN'S DISEASE
     Dates: start: 20070101

REACTIONS (9)
  - HEADACHE [None]
  - INJECTION SITE MASS [None]
  - FALL [None]
  - DEHYDRATION [None]
  - THIRST [None]
  - URINARY TRACT INFECTION [None]
  - DIARRHOEA [None]
  - FATIGUE [None]
  - POOR QUALITY SLEEP [None]
